FAERS Safety Report 11334126 (Version 1)
Quarter: 2015Q3

REPORT INFORMATION
  Report Type: Spontaneous
  Country: US (occurrence: US)
  Receive Date: 20150803
  Receipt Date: 20150803
  Transmission Date: 20151125
  Serious: No
  Sender: FDA-Public Use
  Company Number: CHPA2015US009082

PATIENT
  Age: 70 Year
  Sex: Female

DRUGS (1)
  1. VOLTAREN [Suspect]
     Active Substance: DICLOFENAC SODIUM
     Indication: BONE PAIN
     Dosage: UNK
     Route: 061

REACTIONS (3)
  - Product use issue [Unknown]
  - Drug administered at inappropriate site [Unknown]
  - Wrong technique in product usage process [Unknown]
